FAERS Safety Report 11660345 (Version 1)
Quarter: 2015Q4

REPORT INFORMATION
  Report Type: Spontaneous
  Country: US (occurrence: None)
  Receive Date: 20151026
  Receipt Date: 20151026
  Transmission Date: 20160304
  Serious: Yes (Hospitalization, Other)
  Sender: FDA-Public Use
  Company Number: US-MDT-ADR-2015-02022

PATIENT
  Age: 16 Year
  Sex: Female

DRUGS (1)
  1. BACLOFEN INTRATHECAL 2000 MCG/ML [Suspect]
     Active Substance: BACLOFEN
     Dosage: 1300 MCG/DAY

REACTIONS (5)
  - Drug withdrawal syndrome [None]
  - Tachypnoea [None]
  - Tremor [None]
  - Seizure like phenomena [None]
  - Mental status changes [None]
